FAERS Safety Report 15594187 (Version 3)
Quarter: 2018Q4

REPORT INFORMATION
  Report Type: Spontaneous
  Country: BR (occurrence: BR)
  Receive Date: 20181107
  Receipt Date: 20181203
  Transmission Date: 20190205
  Serious: Yes (Death, Hospitalization, Other)
  Sender: FDA-Public Use
  Company Number: BR-B.I. PHARMACEUTICALS,INC./RIDGEFIELD-2018-BI-054174

PATIENT
  Age: 80 Year
  Sex: Male
  Weight: 82 kg

DRUGS (4)
  1. PANTOPRAZOL [Concomitant]
     Active Substance: PANTOPRAZOLE SODIUM
     Indication: PRODUCT USED FOR UNKNOWN INDICATION
     Route: 065
  2. PRADAXA [Suspect]
     Active Substance: DABIGATRAN ETEXILATE MESYLATE
     Indication: ATRIAL FIBRILLATION
  3. LOSARTANA [Concomitant]
     Active Substance: LOSARTAN
     Indication: PRODUCT USED FOR UNKNOWN INDICATION
     Route: 065
  4. PRADAXA [Suspect]
     Active Substance: DABIGATRAN ETEXILATE MESYLATE
     Indication: ARRHYTHMIA
     Route: 065

REACTIONS (6)
  - Arthritis bacterial [Fatal]
  - Respiratory failure [Unknown]
  - Multiple organ dysfunction syndrome [Fatal]
  - Anuria [Unknown]
  - Acute kidney injury [Unknown]
  - Renal impairment [Unknown]
